FAERS Safety Report 10786453 (Version 1)
Quarter: 2015Q1

REPORT INFORMATION
  Report Type: Spontaneous
  Country: US (occurrence: None)
  Receive Date: 20150210
  Receipt Date: 20150210
  Transmission Date: 20150721
  Serious: No
  Sender: FDA-Public Use
  Company Number: None

PATIENT
  Age: 22 Year
  Sex: Female
  Weight: 54.43 kg

DRUGS (1)
  1. VELEXTRA 296 MG [Suspect]
     Active Substance: DIETARY SUPPLEMENT
     Indication: SEXUAL DYSFUNCTION
     Dosage: DATE OF USE: A FEW HOURS, 2 CAPSULES, AS NEEDED, TAKEN BY MOUTH
     Route: 048

REACTIONS (8)
  - Blood pressure decreased [None]
  - Malaise [None]
  - Tremor [None]
  - Presyncope [None]
  - Nausea [None]
  - Visual impairment [None]
  - Skin discolouration [None]
  - Dizziness [None]

NARRATIVE: CASE EVENT DATE: 20150208
